FAERS Safety Report 8518830-3 (Version None)
Quarter: 2012Q3

REPORT INFORMATION
  Report Type: 
  Country: None (occurrence: None)
  Receive Date: 20120718
  Receipt Date: 20120713
  Transmission Date: 20120928
  Serious: Yes (Hospitalization)
  Sender: FDA-Public Use
  Company Number: PHHY2012BR060689

PATIENT
  Sex: Female

DRUGS (4)
  1. EXELON [Suspect]
     Indication: DEMENTIA
     Dosage: 1.5 MG, DAILY
     Route: 048
  2. EXELON [Suspect]
     Dosage: 3 MG, DAILY
     Route: 048
  3. SOTALOL HYDROCHLORIDE [Concomitant]
     Indication: ARRHYTHMIA
     Dosage: 1 DF, UNK
  4. EXELON [Suspect]
     Dosage: 4.5 MG, DAILY
     Route: 048

REACTIONS (6)
  - GASTROINTESTINAL CARCINOMA [None]
  - CHOLELITHIASIS [None]
  - ASTHMA [None]
  - NASOPHARYNGITIS [None]
  - INCREASED BRONCHIAL SECRETION [None]
  - INTESTINAL OBSTRUCTION [None]
